FAERS Safety Report 8985853 (Version 1)
Quarter: 2012Q4

REPORT INFORMATION
  Report Type: 
  Country: DK (occurrence: DK)
  Receive Date: 20121226
  Receipt Date: 20121226
  Transmission Date: 20130627
  Serious: Yes (Hospitalization, Other)
  Sender: FDA-Public Use
  Company Number: PHHY2012DK118145

PATIENT
  Age: 52 Year
  Sex: Female
  Weight: 98 kg

DRUGS (14)
  1. DOXORUBICIN [Suspect]
     Indication: DIFFUSE LARGE B-CELL LYMPHOMA
     Dosage: 100 mg, UNK
     Route: 042
     Dates: start: 20101118
  2. DOXORUBICIN [Suspect]
     Dosage: UNK UKN, UNK
     Dates: start: 20121223
  3. VINCRISTINE [Suspect]
     Indication: DIFFUSE LARGE B-CELL LYMPHOMA
     Dosage: 2 mg, UNK
     Route: 042
     Dates: start: 20101118, end: 20101210
  4. CYCLOPHOSPHAMIDE [Suspect]
     Indication: DIFFUSE LARGE B-CELL LYMPHOMA
     Dosage: 1500 mg, UNK
     Route: 042
     Dates: start: 20101118
  5. CYCLOPHOSPHAMIDE [Suspect]
     Dosage: UNK UKN, UNK
     Dates: start: 20101223
  6. METHOTREXATE [Concomitant]
     Dates: start: 20100827
  7. METHYLPREDNISOLONE [Concomitant]
     Dates: start: 20100827
  8. CYTARABINE [Concomitant]
     Dates: start: 20100930
  9. RITUXIMAB [Concomitant]
     Indication: DIFFUSE LARGE B-CELL LYMPHOMA
     Dosage: 750 mg, UNK
     Route: 042
     Dates: start: 20101118
  10. RITUXIMAB [Concomitant]
     Dosage: UNK UKN, UNK
     Dates: start: 20101223
  11. FILGRASTIM [Concomitant]
     Indication: DIFFUSE LARGE B-CELL LYMPHOMA
     Dosage: 6 mg, UNK
     Route: 058
     Dates: start: 20101119
  12. FILGRASTIM [Concomitant]
     Dosage: UNK UKN, UNK
     Dates: start: 20101224
  13. PREDNISONE [Concomitant]
     Dosage: 100 mg, UNK
     Route: 048
     Dates: start: 20101118
  14. PREDNISONE [Concomitant]
     Dosage: UNK UKN, UNK
     Dates: start: 20101227

REACTIONS (3)
  - Peripheral sensory neuropathy [Not Recovered/Not Resolved]
  - Sensory loss [Not Recovered/Not Resolved]
  - Fall [Unknown]
